FAERS Safety Report 7039497-X (Version None)
Quarter: 2010Q4

REPORT INFORMATION
  Report Type: 
  Country: None (occurrence: None)
  Receive Date: 20101012
  Receipt Date: 20100929
  Transmission Date: 20110411
  Serious: Yes (Hospitalization)
  Sender: FDA-Public Use
  Company Number: US-ELI_LILLY_AND_COMPANY-US201006007839

PATIENT
  Sex: Female
  Weight: 67.6 kg

DRUGS (38)
  1. PRASUGREL HYDROCHLORIDE [Suspect]
     Indication: ACUTE CORONARY SYNDROME
     Dosage: 10 MG, DAILY (1/D)
     Dates: start: 20100514, end: 20100514
  2. PRASUGREL HYDROCHLORIDE [Suspect]
     Dosage: 10 MG, DAILY (1/D)
     Dates: start: 20100515
  3. ASPIRIN [Concomitant]
     Indication: ACUTE CORONARY SYNDROME
     Dosage: 325 MG, DAILY (1/D)
     Route: 065
     Dates: start: 20100514
  4. CRESTOR [Concomitant]
     Indication: HYPERLIPIDAEMIA
     Dosage: 10 MG, DAILY (1/D)
     Route: 048
     Dates: end: 20100510
  5. CRESTOR [Concomitant]
     Dosage: 20 MG, DAILY (1/D)
     Route: 048
     Dates: start: 20100519
  6. BENICAR [Concomitant]
     Indication: HYPERTENSION
     Dosage: 20 MG, DAILY (1/D)
     Route: 048
     Dates: end: 20100510
  7. BENICAR [Concomitant]
     Dosage: 40 MG, DAILY (1/D)
     Route: 048
     Dates: start: 20100511, end: 20100515
  8. BENICAR [Concomitant]
     Dosage: 20 MG, DAILY (1/D)
     Route: 048
     Dates: start: 20100511, end: 20100511
  9. BENICAR [Concomitant]
     Dosage: 20 MG, DAILY (1/D)
     Route: 048
     Dates: start: 20100518, end: 20100519
  10. ATENOLOL [Concomitant]
     Indication: HYPERTENSION
     Dosage: 50 MG, DAILY (1/D)
     Route: 048
     Dates: end: 20100510
  11. NOVOLOG [Concomitant]
     Indication: DIABETES MELLITUS
     Dosage: 4 IU, 3/D
     Route: 058
     Dates: end: 20100510
  12. NOVOLOG [Concomitant]
     Dosage: 2 IU, 4/D
     Route: 058
     Dates: start: 20100511, end: 20100512
  13. NOVOLOG [Concomitant]
     Dosage: 2 IU, DAILY (1/D)
     Route: 058
     Dates: start: 20100512
  14. NOVOLOG [Concomitant]
     Dosage: 4 IU, 3/D
     Route: 058
     Dates: start: 20100511
  15. LEVEMIR [Concomitant]
     Indication: DIABETES MELLITUS
     Dosage: 50 IU, DAILY (1/D)
     Route: 058
     Dates: end: 20100510
  16. LEVEMIR [Concomitant]
     Dosage: 10 IU, DAILY (1/D)
     Route: 058
     Dates: start: 20100512, end: 20100512
  17. LEVEMIR [Concomitant]
     Dosage: 30 IU, DAILY (1/D)
     Route: 058
     Dates: start: 20100512
  18. LEVEMIR [Concomitant]
     Dosage: 50 IU, DAILY (1/D)
     Route: 058
     Dates: start: 20100511, end: 20100512
  19. LEVEMIR [Concomitant]
     Dosage: 25 IU, DAILY (1/D)
     Route: 058
     Dates: start: 20100511, end: 20100512
  20. LEVEMIR [Concomitant]
     Dosage: 10 IU, DAILY (1/D)
     Route: 058
     Dates: start: 20100513
  21. LEVEMIR [Concomitant]
     Dosage: 25 IU, DAILY (1/D)
     Route: 058
     Dates: end: 20100510
  22. COREG [Concomitant]
     Indication: HYPERTENSION
     Dosage: 25 MG, 2/D
     Route: 048
     Dates: start: 20100512, end: 20100514
  23. COREG [Concomitant]
     Dosage: 12.5 MG, 2/D
     Route: 048
     Dates: start: 20100516, end: 20100518
  24. COREG [Concomitant]
     Dosage: 25 MG, 2/D
     Route: 048
     Dates: start: 20100514, end: 20100516
  25. COREG [Concomitant]
     Dosage: 25 MG, 2/D
     Route: 048
     Dates: start: 20100518, end: 20100519
  26. COREG [Concomitant]
     Dosage: 12.5 MG, 2/D
     Route: 048
     Dates: start: 20100519
  27. NORVASC [Concomitant]
     Indication: HYPERTENSION
     Dosage: 5 MG, DAILY (1/D)
     Route: 048
     Dates: start: 20100513, end: 20100515
  28. NORVASC [Concomitant]
     Dosage: 10 MG, OTHER
     Route: 048
     Dates: start: 20100512, end: 20100512
  29. NORVASC [Concomitant]
     Dosage: 5 MG, OTHER
     Route: 048
     Dates: start: 20100512, end: 20100512
  30. NORVASC [Concomitant]
     Dosage: 5 MG, DAILY (1/D)
     Route: 048
     Dates: start: 20100513, end: 20100515
  31. NORVASC [Concomitant]
     Dosage: 10 MG, DAILY (1/D)
     Route: 048
     Dates: start: 20100519
  32. ZOCOR [Concomitant]
     Indication: HYPERLIPIDAEMIA
     Dosage: 20 MG, DAILY (1/D)
     Route: 048
     Dates: start: 20100511, end: 20100514
  33. TENORMIN [Concomitant]
     Indication: HYPERTENSION
     Dosage: 50 MG, DAILY (1/D)
     Route: 048
     Dates: start: 20100511, end: 20100512
  34. TENORMIN [Concomitant]
     Dosage: 50 MG, OTHER
     Route: 048
     Dates: start: 20100511, end: 20100511
  35. LIPITOR [Concomitant]
     Indication: HYPERLIPIDAEMIA
     Dosage: 80 MG, DAILY (1/D)
     Route: 048
     Dates: start: 20100514, end: 20100518
  36. ASPIRIN [Concomitant]
     Indication: ANTIPLATELET THERAPY
     Dosage: 325 MG, DAILY (1/D)
     Route: 048
     Dates: start: 20100514
  37. PLAVIX [Concomitant]
     Indication: ANTIPLATELET THERAPY
     Dosage: 75 MG, DAILY (1/D)
     Route: 048
     Dates: start: 20100514, end: 20100514
  38. PROTONIX [Concomitant]
     Indication: GASTROOESOPHAGEAL REFLUX DISEASE
     Dosage: 40 MG, DAILY (1/D)
     Route: 048
     Dates: start: 20100518

REACTIONS (5)
  - ANAEMIA [None]
  - CARDIAC FAILURE CONGESTIVE [None]
  - HYPERSENSITIVITY [None]
  - MENTAL STATUS CHANGES [None]
  - RENAL FAILURE ACUTE [None]
